FAERS Safety Report 10900211 (Version 1)
Quarter: 2015Q1

REPORT INFORMATION
  Report Type: Spontaneous
  Country: US (occurrence: US)
  Receive Date: 20150310
  Receipt Date: 20150310
  Transmission Date: 20150721
  Serious: Yes (Other)
  Sender: FDA-Public Use
  Company Number: US-AUROBINDO-AUR-APL-2015-01798

PATIENT
  Age: 89 Year
  Sex: Male

DRUGS (2)
  1. AMOXICILLIN+CLAVULANIC ACID [Suspect]
     Active Substance: AMOXICILLIN\CLAVULANIC ACID
     Indication: URINARY TRACT INFECTION
     Dosage: UNK
     Route: 065
  2. LEVOFLOXACIN. [Suspect]
     Active Substance: LEVOFLOXACIN
     Indication: PNEUMONIA
     Dosage: UNK
     Route: 065

REACTIONS (11)
  - Cholangitis [Recovered/Resolved]
  - Blood alkaline phosphatase increased [Recovered/Resolved]
  - Gamma-glutamyltransferase increased [Recovered/Resolved]
  - Cholestasis [Recovered/Resolved]
  - Blood bilirubin increased [Recovered/Resolved]
  - Aspartate aminotransferase increased [Recovered/Resolved]
  - Blood albumin increased [Recovered/Resolved]
  - Abnormal faeces [Recovered/Resolved]
  - Jaundice [Recovered/Resolved]
  - Bilirubin conjugated increased [Recovered/Resolved]
  - Chromaturia [Recovered/Resolved]
